FAERS Safety Report 4568438-X (Version None)
Quarter: 2005Q1

REPORT INFORMATION
  Report Type: 
  Country: None (occurrence: None)
  Receive Date: 20050131
  Receipt Date: 20050121
  Transmission Date: 20050727
  Serious: Yes (Other)
  Sender: FDA-Public Use
  Company Number: 2005-01-1488

PATIENT
  Age: 56 Year
  Sex: Female

DRUGS (3)
  1. TEMODAL [Suspect]
     Dosage: ORAL
     Route: 048
  2. DEXAMETHASONE [Concomitant]
  3. ZOPICLONE [Concomitant]

REACTIONS (4)
  - DISORIENTATION [None]
  - DIZZINESS [None]
  - LOSS OF CONSCIOUSNESS [None]
  - MALAISE [None]
